FAERS Safety Report 7334995-3 (Version None)
Quarter: 2011Q1

REPORT INFORMATION
  Report Type: 
  Country: None (occurrence: None)
  Receive Date: 20110307
  Receipt Date: 20110225
  Transmission Date: 20110831
  Serious: Yes (Other)
  Sender: FDA-Public Use
  Company Number: CA-ROCHE-762471

PATIENT
  Age: 47 Year
  Sex: Female
  Weight: 59 kg

DRUGS (4)
  1. PEGASYS [Suspect]
     Route: 065
  2. RIBAVIRIN [Suspect]
     Route: 065
  3. ACETAMINOPHEN [Concomitant]
  4. CLONAZEPAM [Concomitant]

REACTIONS (6)
  - HALLUCINATION [None]
  - FEELING ABNORMAL [None]
  - PHOTOPHOBIA [None]
  - JUDGEMENT IMPAIRED [None]
  - THINKING ABNORMAL [None]
  - DISTURBANCE IN ATTENTION [None]
